FAERS Safety Report 16380618 (Version 2)
Quarter: 2024Q1

REPORT INFORMATION
  Report Type: Spontaneous
  Country: IT (occurrence: IT)
  Receive Date: 20190601
  Receipt Date: 20240201
  Transmission Date: 20240410
  Serious: Yes (Hospitalization, Disabling, Other)
  Sender: FDA-Public Use
  Company Number: IT-AUROBINDO-AUR-APL-2013-10064

PATIENT
  Age: 72 Year
  Sex: Male

DRUGS (15)
  1. ASPIRIN [Interacting]
     Active Substance: ASPIRIN
     Indication: Product used for unknown indication
     Dosage: 100 MG,ONCE A DAY,
     Route: 065
     Dates: start: 201107
  2. ATORVASTATIN [Suspect]
     Active Substance: ATORVASTATIN
     Indication: Hypercholesterolaemia
     Dosage: 40 MG,ONCE A DAY,
     Route: 065
     Dates: end: 201202
  3. ATORVASTATIN [Suspect]
     Active Substance: ATORVASTATIN
     Indication: Hypertriglyceridaemia
  4. BISOPROLOL FUMARATE [Interacting]
     Active Substance: BISOPROLOL FUMARATE
     Indication: Product used for unknown indication
     Dosage: 2.5 MG,ONCE A DAY
     Route: 065
  5. FUROSEMIDE [Interacting]
     Active Substance: FUROSEMIDE
     Indication: Diuretic therapy
     Dosage: 25 MG,TWICE WEEKLY,
     Route: 065
  6. FUROSEMIDE [Interacting]
     Active Substance: FUROSEMIDE
     Dosage: 50 MILLIGRAM, EVERY WEEK
     Route: 065
  7. FUROSEMIDE [Interacting]
     Active Substance: FUROSEMIDE
     Dosage: 7142 MILLIGRAM, CYCLICAL
     Route: 065
  8. OMEPRAZOLE [Interacting]
     Active Substance: OMEPRAZOLE
     Indication: Product used for unknown indication
     Dosage: 20 MG,ONCE A DAY,
     Route: 065
  9. SERTRALINE HYDROCHLORIDE [Interacting]
     Active Substance: SERTRALINE HYDROCHLORIDE
     Indication: Neuropsychological symptoms
     Dosage: 25 MG,ONCE A DAY,
     Route: 065
  10. QUETIAPINE [Interacting]
     Active Substance: QUETIAPINE
     Indication: Behaviour disorder
     Dosage: 50 MG,ONCE A DAY,
     Route: 065
  11. QUETIAPINE [Interacting]
     Active Substance: QUETIAPINE
     Indication: Dementia
  12. ALLOPURINOL [Interacting]
     Active Substance: ALLOPURINOL
     Indication: Product used for unknown indication
     Dosage: 150 MG,ONCE A DAY,
     Route: 065
  13. NITROGLYCERIN [Interacting]
     Active Substance: NITROGLYCERIN
     Indication: Product used for unknown indication
     Dosage: 10 MG,ONCE A DAY,
     Route: 062
  14. RANOLAZINE [Interacting]
     Active Substance: RANOLAZINE
     Indication: Angina pectoris
     Dosage: 1000 MG,ONCE A DAY,
     Route: 065
     Dates: start: 201107
  15. VALSARTAN [Interacting]
     Active Substance: VALSARTAN
     Indication: Product used for unknown indication
     Dosage: 20 MILLIGRAM, ONCE A DAY
     Route: 065

REACTIONS (7)
  - Rhabdomyolysis [Recovered/Resolved]
  - Drug interaction [Recovered/Resolved]
  - Malaise [Recovered/Resolved]
  - Asthenia [Recovered/Resolved]
  - Blood creatine phosphokinase increased [Recovered/Resolved]
  - Myalgia [Recovered/Resolved]
  - Drop attacks [Unknown]

NARRATIVE: CASE EVENT DATE: 20110901
